FAERS Safety Report 13437757 (Version 1)
Quarter: 2017Q2

REPORT INFORMATION
  Report Type: Spontaneous
  Country: US (occurrence: US)
  Receive Date: 20170412
  Receipt Date: 20170412
  Transmission Date: 20170830
  Serious: No
  Sender: FDA-Public Use
  Company Number: US-SA-2016SA237489

PATIENT
  Age: 81 Year
  Sex: Female

DRUGS (1)
  1. ALLEGRA ALLERGY [Suspect]
     Active Substance: FEXOFENADINE HYDROCHLORIDE
     Dosage: SRART DATE WAS ABOUT WEEK AGO
     Route: 048

REACTIONS (4)
  - Renal disorder [Unknown]
  - Product use issue [Unknown]
  - Hypertension [Unknown]
  - Condition aggravated [Unknown]
